FAERS Safety Report 6082062-1 (Version None)
Quarter: 2009Q1

REPORT INFORMATION
  Report Type: 
  Country: None (occurrence: None)
  Receive Date: 20090218
  Receipt Date: 20081014
  Transmission Date: 20090719
  Serious: No
  Sender: FDA-Public Use
  Company Number: US-BRISTOL-MYERS SQUIBB COMPANY-14369953

PATIENT
  Age: 71 Year
  Sex: Female
  Weight: 86 kg

DRUGS (6)
  1. METFORMIN HCL [Suspect]
     Indication: DIABETES MELLITUS
     Dosage: 1 DOSAGE FORM = 1 TABLET
  2. DIOVAN [Concomitant]
  3. CYMBALTA [Concomitant]
  4. PLAVIX [Concomitant]
  5. ACTOS [Concomitant]
  6. CARVEDILOL [Concomitant]
     Dosage: INCREASED FROM HALF TABLET TO 1 TAB.

REACTIONS (1)
  - BLOOD POTASSIUM INCREASED [None]
